FAERS Safety Report 5742729-9 (Version None)
Quarter: 2008Q2

REPORT INFORMATION
  Report Type: 
  Country: None (occurrence: None)
  Receive Date: 20080519
  Receipt Date: 20080516
  Transmission Date: 20081010
  Serious: Yes (Hospitalization)
  Sender: FDA-Public Use
  Company Number: B0520893A

PATIENT
  Age: 50 Year
  Sex: Female

DRUGS (3)
  1. AMOXIL [Suspect]
     Indication: BRONCHITIS
     Dosage: 750MG PER DAY
     Route: 048
     Dates: start: 20080206, end: 20080206
  2. DUACT [Suspect]
     Indication: SINUSITIS
     Route: 048
     Dates: start: 20040101
  3. NEOTIGASON [Concomitant]
     Route: 065

REACTIONS (7)
  - DERMATITIS EXFOLIATIVE [None]
  - ERYTHEMA [None]
  - FATIGUE [None]
  - RASH PUSTULAR [None]
  - SKIN EXFOLIATION [None]
  - SWELLING FACE [None]
  - TONGUE GEOGRAPHIC [None]
